FAERS Safety Report 9814589 (Version 2)
Quarter: 2014Q1

REPORT INFORMATION
  Report Type: Spontaneous
  Country: GB (occurrence: GB)
  Receive Date: 20140113
  Receipt Date: 20140113
  Transmission Date: 20141002
  Serious: No
  Sender: FDA-Public Use
  Company Number: PHFR2014GB000577

PATIENT
  Sex: Male

DRUGS (1)
  1. TERBINAFINE [Suspect]
     Dosage: 250 MG, UNK
     Route: 048

REACTIONS (2)
  - Foreign body [Unknown]
  - Product quality issue [Unknown]
